FAERS Safety Report 14193076 (Version 1)
Quarter: 2017Q4

REPORT INFORMATION
  Report Type: Spontaneous
  Country: IN (occurrence: IN)
  Receive Date: 20171116
  Receipt Date: 20171116
  Transmission Date: 20180321
  Serious: No
  Sender: FDA-Public Use
  Company Number: IN-LUPIN PHARMACEUTICALS INC.-E2B_00006316

PATIENT
  Age: 26 Year
  Sex: Female

DRUGS (2)
  1. FOLRICH [Concomitant]
     Indication: PRODUCT USED FOR UNKNOWN INDICATION
     Dosage: UNK UNK,UNK,UNKNOWN
     Route: 065
     Dates: start: 20161003
  2. YAMINI TABS [Suspect]
     Active Substance: DROSPIRENONE\ETHINYL ESTRADIOL
     Dosage: 1 DF,QD,
     Route: 048
     Dates: start: 20160817

REACTIONS (4)
  - Seborrhoea [Not Recovered/Not Resolved]
  - Drug ineffective for unapproved indication [Not Recovered/Not Resolved]
  - Product use in unapproved indication [Unknown]
  - Acne [None]

NARRATIVE: CASE EVENT DATE: 20160817
